FAERS Safety Report 5999084-9 (Version None)
Quarter: 2008Q4

REPORT INFORMATION
  Report Type: 
  Country: None (occurrence: None)
  Receive Date: 20081211
  Receipt Date: 20081130
  Transmission Date: 20090506
  Serious: Yes (Hospitalization)
  Sender: FDA-Public Use
  Company Number: JPI-P-005274

PATIENT
  Age: 24 Year
  Sex: Female
  Weight: 58.9676 kg

DRUGS (4)
  1. XYREM [Suspect]
     Indication: NARCOLEPSY
     Dosage: 6 GM (3 GM, 2 IN 1 D), ORAL; 7 GM (3.5 GM,2 IN 1 D), ORAL; 7 GM (3.5 GM.2 IN 1 D), ORAL
     Route: 048
     Dates: start: 20071101, end: 20081125
  2. XYREM [Suspect]
     Indication: NARCOLEPSY
     Dosage: 6 GM (3 GM, 2 IN 1 D), ORAL; 7 GM (3.5 GM,2 IN 1 D), ORAL; 7 GM (3.5 GM.2 IN 1 D), ORAL
     Route: 048
     Dates: start: 20081129
  3. DROSPIRENONE AND ETHINYL ESTRADIOL [Concomitant]
  4. BIRTH CONTROL [10004944] [V.11.0] [Concomitant]

REACTIONS (2)
  - CHOLELITHIASIS [None]
  - DRY MOUTH [None]
